FAERS Safety Report 6631369-5 (Version None)
Quarter: 2010Q1

REPORT INFORMATION
  Report Type: 
  Country: None (occurrence: None)
  Receive Date: 20100312
  Receipt Date: 20100304
  Transmission Date: 20100710
  Serious: Yes (Disabling)
  Sender: FDA-Public Use
  Company Number: JP-NAPPMUNDI-MAG-2010-0001210

PATIENT
  Age: 56 Year
  Sex: Female

DRUGS (2)
  1. THEOPHYLLINE [Suspect]
     Indication: DRUG USE FOR UNKNOWN INDICATION
     Dosage: 400 MG, DAILY
     Route: 048
     Dates: start: 19980101
  2. MERCAZOLE [Concomitant]

REACTIONS (1)
  - LIVER DISORDER [None]
